FAERS Safety Report 17075755 (Version 1)
Quarter: 2019Q4

REPORT INFORMATION
  Report Type: Spontaneous
  Country: US (occurrence: US)
  Receive Date: 20191125
  Receipt Date: 20191125
  Transmission Date: 20200122
  Serious: Yes (Death)
  Sender: FDA-Public Use
  Company Number: None

PATIENT
  Age: 73 Year
  Sex: Male

DRUGS (14)
  1. REPATHA [Suspect]
     Active Substance: EVOLOCUMAB
     Indication: HYPERLIPIDAEMIA
     Dosage: ?          OTHER FREQUENCY:EVERY TWO WEEKS;?
     Route: 058
     Dates: start: 20181023, end: 20190711
  2. HUMALOG [Concomitant]
     Active Substance: INSULIN LISPRO
  3. IMDUR [Concomitant]
     Active Substance: ISOSORBIDE MONONITRATE
  4. NORCO [Concomitant]
     Active Substance: ACETAMINOPHEN\HYDROCODONE BITARTRATE
  5. MAG OXIDE [Concomitant]
     Active Substance: MAGNESIUM OXIDE
  6. NITROSTAT [Concomitant]
     Active Substance: NITROGLYCERIN
  7. AMBIEN [Concomitant]
     Active Substance: ZOLPIDEM TARTRATE
  8. LACTULOSE. [Concomitant]
     Active Substance: LACTULOSE
  9. PLAVIX [Concomitant]
     Active Substance: CLOPIDOGREL BISULFATE
  10. ASPRIN [Concomitant]
     Active Substance: ASPIRIN
  11. CYMBALTA [Concomitant]
     Active Substance: DULOXETINE HYDROCHLORIDE
  12. ALCLOMETASON [Concomitant]
  13. METOPROL TAR [Concomitant]
  14. ZANAFLEX [Concomitant]
     Active Substance: TIZANIDINE HYDROCHLORIDE

REACTIONS (1)
  - Death [None]

NARRATIVE: CASE EVENT DATE: 20190711
